FAERS Safety Report 5440594-0 (Version None)
Quarter: 2007Q3

REPORT INFORMATION
  Report Type: 
  Country: None (occurrence: None)
  Receive Date: 20070731
  Receipt Date: 20070611
  Transmission Date: 20080115
  Serious: No
  Sender: FDA-Public Use
  Company Number: US200706002310

PATIENT
  Age: 74 Year
  Sex: Male

DRUGS (12)
  1. BYETTA [Suspect]
     Indication: TYPE 2 DIABETES MELLITUS
     Dosage: 5 UG, 2/D, SUBCUTANEOUS
     Route: 058
     Dates: start: 20070501
  2. ASPIRIN [Concomitant]
  3. INSULIN (INSULIN) [Concomitant]
  4. CENTRUM SILVER (ASCORBIC ACID, CALCIUM, MINERALS NOS, RETINOL, TOCOPHE [Concomitant]
  5. FISH OIL (FISH OIL) [Concomitant]
  6. FOLIC ACID [Concomitant]
  7. LISINOPRIL [Concomitant]
  8. TOPROL-XL [Concomitant]
  9. ACTOS /USA/ (PIOGLITAZONE HYDROCHLORIDE) [Concomitant]
  10. AMARYL [Concomitant]
  11. GLUCOVANCE [Concomitant]
  12. LANTUS [Concomitant]

REACTIONS (5)
  - BLOOD GLUCOSE DECREASED [None]
  - CONSTIPATION [None]
  - INSOMNIA [None]
  - PAINFUL DEFAECATION [None]
  - WEIGHT DECREASED [None]
